FAERS Safety Report 6337238-2 (Version None)
Quarter: 2009Q3

REPORT INFORMATION
  Report Type: 
  Country: None (occurrence: None)
  Receive Date: 20090902
  Receipt Date: 20090826
  Transmission Date: 20100115
  Serious: Yes (Hospitalization)
  Sender: FDA-Public Use
  Company Number: US-BIOGENIDEC-2009BI021815

PATIENT
  Age: 40 Year
  Sex: Female

DRUGS (2)
  1. TYSABRI [Suspect]
     Indication: MULTIPLE SCLEROSIS
     Route: 042
     Dates: start: 20080908
  2. SOLU-MEDROL [Concomitant]

REACTIONS (3)
  - BACK PAIN [None]
  - CENTRAL VENOUS CATHETER REMOVAL [None]
  - MULTIPLE SCLEROSIS RELAPSE [None]
